FAERS Safety Report 9111666 (Version 2)
Quarter: 2014Q1

REPORT INFORMATION
  Report Type: Spontaneous
  Country: US (occurrence: US)
  Receive Date: 20130219
  Receipt Date: 20140213
  Transmission Date: 20141002
  Serious: No
  Sender: FDA-Public Use
  Company Number: US-BRISTOL-MYERS SQUIBB COMPANY-16678526

PATIENT
  Age: 81 Year
  Sex: Female

DRUGS (1)
  1. ORENCIA [Suspect]
     Indication: RHEUMATOID ARTHRITIS
     Dosage: LAST INF- 2 TO 3 WEEKS AGO?LAST INF ON 1AUG2012
     Route: 042

REACTIONS (4)
  - Epistaxis [Unknown]
  - Cough [Unknown]
  - Joint swelling [Unknown]
  - Neuropathy peripheral [Unknown]
